FAERS Safety Report 5343338-6 (Version None)
Quarter: 2007Q2

REPORT INFORMATION
  Report Type: 
  Country: None (occurrence: None)
  Receive Date: 20070501
  Receipt Date: 20070123
  Transmission Date: 20071010
  Serious: No
  Sender: FDA-Public Use
  Company Number: 200710412US

PATIENT
  Age: 27 Year
  Sex: Male

DRUGS (1)
  1. KETEK [Suspect]
     Indication: PNEUMONIA PRIMARY ATYPICAL
     Dosage: 1600 MG/DAY
     Dates: start: 20061208

REACTIONS (4)
  - HEART RATE IRREGULAR [None]
  - PAIN IN EXTREMITY [None]
  - PALPITATIONS [None]
  - SENSATION OF PRESSURE [None]
